FAERS Safety Report 18484097 (Version 4)
Quarter: 2021Q1

REPORT INFORMATION
  Report Type: Report from Study
  Country: US (occurrence: US)
  Receive Date: 20201109
  Receipt Date: 20210309
  Transmission Date: 20210419
  Serious: Yes (Hospitalization, Other)
  Sender: FDA-Public Use
  Company Number: US-ROCHE-2707566

PATIENT
  Age: 54 Year
  Sex: Male
  Weight: 66.8 kg

DRUGS (16)
  1. IBRUTINIB [Suspect]
     Active Substance: IBRUTINIB
     Indication: B-CELL LYMPHOMA
  2. PREDNISONE. [Suspect]
     Active Substance: PREDNISONE
     Indication: B-CELL LYMPHOMA
  3. METOPROLOL. [Concomitant]
     Active Substance: METOPROLOL
  4. VENETOCLAX. [Suspect]
     Active Substance: VENETOCLAX
     Indication: B-CELL LYMPHOMA REFRACTORY
     Dosage: DAYS 2?14, CYCLE 1, DAY 1?LAST DOSE OF VENETOCLAX RECEIVED ON 29/OCT/2020
     Route: 048
     Dates: start: 20200905
  5. IBRUTINIB [Suspect]
     Active Substance: IBRUTINIB
     Indication: B-CELL LYMPHOMA REFRACTORY
     Dosage: DAYS 1?14, CYCLE 1, DAY 1?LAST DOSE OF IBRUTINIB RECEIVED ON 29/OCT/2020
     Route: 048
     Dates: start: 20200904, end: 20201029
  6. LENALIDOMIDE [Suspect]
     Active Substance: LENALIDOMIDE
     Indication: B-CELL LYMPHOMA
     Route: 065
     Dates: start: 201910, end: 202001
  7. METFORMIN [Concomitant]
     Active Substance: METFORMIN HYDROCHLORIDE
  8. ENALAPRIL [Concomitant]
     Active Substance: ENALAPRIL
  9. ASPIRIN. [Concomitant]
     Active Substance: ASPIRIN
  10. PREDNISONE. [Suspect]
     Active Substance: PREDNISONE
     Indication: B-CELL LYMPHOMA REFRACTORY
     Dosage: DAYS 1?7, CYCLE 1, DAY 1?LAST DOSE OF PREDNISONE RECEIVED ON 22/OCT/2020
     Route: 048
     Dates: start: 20200904, end: 20201022
  11. OBINUTUZUMAB. [Suspect]
     Active Substance: OBINUTUZUMAB
     Indication: B-CELL LYMPHOMA
     Route: 065
     Dates: start: 201910, end: 202001
  12. INSULIN [Concomitant]
     Active Substance: INSULIN NOS
  13. VENETOCLAX. [Suspect]
     Active Substance: VENETOCLAX
     Indication: B-CELL LYMPHOMA
  14. OBINUTUZUMAB. [Suspect]
     Active Substance: OBINUTUZUMAB
     Indication: B-CELL LYMPHOMA REFRACTORY
     Dosage: DAYS 1?2, CYCLE 1, DAY 1
     Route: 042
     Dates: start: 20200904, end: 20201017
  15. LENALIDOMIDE [Suspect]
     Active Substance: LENALIDOMIDE
     Indication: B-CELL LYMPHOMA REFRACTORY
     Dosage: DAYS 1?14, CYCLE 1, DAY 1?LAST DOSE OF LENALIDOMIDE RECEIVED ON 29/OCT/2020
     Route: 048
     Dates: start: 20200904
  16. ATORVASTATIN [Concomitant]
     Active Substance: ATORVASTATIN

REACTIONS (3)
  - Dyspnoea [Not Recovered/Not Resolved]
  - Pyrexia [Not Recovered/Not Resolved]
  - COVID-19 [Recovered/Resolved]

NARRATIVE: CASE EVENT DATE: 20201030
